FAERS Safety Report 7897044-4 (Version None)
Quarter: 2011Q4

REPORT INFORMATION
  Report Type: 
  Country: None (occurrence: None)
  Receive Date: 20111103
  Receipt Date: 20111021
  Transmission Date: 20120403
  Serious: Yes (Other)
  Sender: FDA-Public Use
  Company Number: 2011MA004512

PATIENT
  Sex: Female
  Weight: 68.0396 kg

DRUGS (7)
  1. ALPRAZOLAM [Concomitant]
  2. CARBIDOPA-LEVO [Concomitant]
  3. ZOCOR [Concomitant]
  4. CARTIA XT [Concomitant]
  5. AVALIDE [Concomitant]
  6. METOCLOPRAMIDE [Suspect]
     Indication: GASTROOESOPHAGEAL REFLUX DISEASE
     Dates: start: 20040101, end: 20050101
  7. NEXIUM [Concomitant]

REACTIONS (17)
  - CHOKING [None]
  - ANXIETY [None]
  - PAIN [None]
  - TARDIVE DYSKINESIA [None]
  - WOUND INFECTION [None]
  - DYSPHAGIA [None]
  - INTESTINAL PERFORATION [None]
  - PHARYNGEAL DISORDER [None]
  - HIATUS HERNIA [None]
  - EMOTIONAL DISORDER [None]
  - ECONOMIC PROBLEM [None]
  - GASTROOESOPHAGEAL REFLUX DISEASE [None]
  - ABDOMINAL PAIN UPPER [None]
  - MUCOUS MEMBRANE DISORDER [None]
  - COUGH [None]
  - EXTRAPYRAMIDAL DISORDER [None]
  - DYSTONIA [None]
